FAERS Safety Report 12362210 (Version 2)
Quarter: 2016Q2

REPORT INFORMATION
  Report Type: Spontaneous
  Country: CN (occurrence: CN)
  Receive Date: 20160512
  Receipt Date: 20160512
  Transmission Date: 20160815
  Serious: Yes (Life-Threatening)
  Sender: FDA-Public Use
  Company Number: CN-BRACCO-002353

PATIENT
  Age: 75 Year
  Sex: Female

DRUGS (1)
  1. SONOVUE [Suspect]
     Active Substance: SULFUR HEXAFLUORIDE
     Indication: ULTRASOUND SCAN
     Route: 042
     Dates: start: 20160414, end: 20160414

REACTIONS (9)
  - Cyanosis [Recovered/Resolved]
  - Tachyarrhythmia [Recovered/Resolved]
  - Chills [Recovered/Resolved]
  - Oxygen saturation decreased [Recovered/Resolved]
  - Cardiac arrest [Recovered/Resolved]
  - Seizure [Recovered/Resolved]
  - Respiratory arrest [Recovered/Resolved]
  - Feeling cold [Recovered/Resolved]
  - Cough [Recovered/Resolved]

NARRATIVE: CASE EVENT DATE: 20160414
